FAERS Safety Report 8420149-6 (Version None)
Quarter: 2012Q2

REPORT INFORMATION
  Report Type: 
  Country: None (occurrence: None)
  Receive Date: 20120607
  Receipt Date: 20120523
  Transmission Date: 20120825
  Serious: No
  Sender: FDA-Public Use
  Company Number: US-ASTRAZENECA-2012SE33474

PATIENT
  Age: 67 Year
  Sex: Male
  Weight: 57.6 kg

DRUGS (18)
  1. ASPIRIN [Concomitant]
     Route: 048
  2. DIVALPROEX SODIUM [Concomitant]
     Route: 048
     Dates: start: 20120427
  3. OXYCODONE HCL [Concomitant]
     Route: 048
     Dates: start: 20120426
  4. JANUVIA [Concomitant]
     Route: 048
     Dates: start: 20111129
  5. BISOPROLOL FUMARATE [Concomitant]
     Route: 048
     Dates: start: 20120504
  6. ZITHROMAX [Concomitant]
     Route: 048
     Dates: start: 20120503, end: 20120508
  7. LORAZEPAM [Concomitant]
     Route: 048
     Dates: start: 20120501
  8. GLUCOVANCE 5 [Concomitant]
     Dosage: 5 MG-500 MG , 1 TABLE TWICE A DAY
     Route: 048
     Dates: start: 20120504
  9. LOSARTAN [Concomitant]
     Route: 048
     Dates: start: 20120306
  10. AMITRIPTYLINE HCL [Concomitant]
     Route: 048
     Dates: start: 20120501
  11. SYMBICORT [Suspect]
     Dosage: 80/4.5 MCG, 2 PUFFS, TWICE DAILY
     Route: 055
     Dates: start: 20120306
  12. CRESTOR [Suspect]
     Route: 048
     Dates: start: 20120306
  13. PLAVIX [Concomitant]
     Route: 048
     Dates: start: 20120504
  14. CEFTRIAXONE [Concomitant]
     Dates: start: 20120504
  15. DIAZEPAM [Concomitant]
     Route: 048
     Dates: start: 20120504
  16. SPIRIVA [Concomitant]
     Route: 055
     Dates: start: 20120306
  17. STOOL SOFTENER [Concomitant]
     Dosage: TWICE DAILY
     Route: 048
  18. IRON SUPPLEMENT [Concomitant]
     Dosage: TWICE DAILY
     Route: 048

REACTIONS (3)
  - COUGH [None]
  - PYREXIA [None]
  - OFF LABEL USE [None]
